FAERS Safety Report 17774770 (Version 2)
Quarter: 2021Q3

REPORT INFORMATION
  Report Type: Report from Study
  Country: US (occurrence: US)
  Receive Date: 20200513
  Receipt Date: 20210813
  Transmission Date: 20211014
  Serious: Yes (Death, Other)
  Sender: FDA-Public Use
  Company Number: US-ACADIA PHARMACEUTICALS INC.-ACA-2020-PIM-000075

PATIENT
  Age: 75 Year
  Sex: Male
  Weight: 77 kg

DRUGS (20)
  1. NUPLAZID [Suspect]
     Active Substance: PIMAVANSERIN TARTRATE
     Indication: DELUSION
     Dosage: 34 MILLIGRAM, QD
     Route: 048
     Dates: end: 20200107
  2. NUPLAZID [Suspect]
     Active Substance: PIMAVANSERIN TARTRATE
     Indication: PARKINSON^S DISEASE PSYCHOSIS
     Dosage: 34 MILLIGRAM, QD
     Route: 048
     Dates: start: 20201203, end: 20210731
  3. ATORVASTATIN [Concomitant]
     Active Substance: ATORVASTATIN
     Dosage: 40 MILLIGRAM
  4. VALACYCLOVIR [Concomitant]
     Active Substance: VALACYCLOVIR HYDROCHLORIDE
     Dosage: 1 GRAM
  5. AMLODIPINE BESYLATE. [Concomitant]
     Active Substance: AMLODIPINE BESYLATE
     Indication: PRODUCT USED FOR UNKNOWN INDICATION
     Dosage: 5 MG AS NEEDED (1)
  6. LOSARTAN. [Concomitant]
     Active Substance: LOSARTAN
     Dosage: 50 MILLIGRAM
  7. AZILECT [Concomitant]
     Active Substance: RASAGILINE MESYLATE
     Indication: PRODUCT USED FOR UNKNOWN INDICATION
     Dosage: 1 MG AT NOON
  8. NUPLAZID [Suspect]
     Active Substance: PIMAVANSERIN TARTRATE
     Indication: HALLUCINATION
     Dosage: 34 MILLIGRAM, QD
     Route: 048
     Dates: start: 201912, end: 201912
  9. ASPIRIN. [Concomitant]
     Active Substance: ASPIRIN
     Indication: PRODUCT USED FOR UNKNOWN INDICATION
     Dosage: 81 MG
  10. SINEMET [Concomitant]
     Active Substance: CARBIDOPA\LEVODOPA
     Indication: PRODUCT USED FOR UNKNOWN INDICATION
     Dosage: 25 CARBIDOPA 100 LEVODOPA 1.5 AM, 1 AT NOON AND 1.5 AT NIGHT
  11. AMLODIPINE [Concomitant]
     Active Substance: AMLODIPINE BESYLATE
     Dosage: 2.5 MG
  12. RASAGILINE. [Concomitant]
     Active Substance: RASAGILINE
     Dosage: 1 MILLIGRAM
  13. CINNAMON. [Concomitant]
     Active Substance: CINNAMON
     Indication: DROOLING
  14. NOURIANZ [Concomitant]
     Active Substance: ISTRADEFYLLINE
     Dosage: 20 MILLIGRAM
  15. DONEPEZIL. [Concomitant]
     Active Substance: DONEPEZIL
     Indication: PRODUCT USED FOR UNKNOWN INDICATION
     Dosage: 10MG AT NIGHT
  16. LISINOPRIL. [Concomitant]
     Active Substance: LISINOPRIL
     Indication: PRODUCT USED FOR UNKNOWN INDICATION
     Dosage: 20 MG 1 UNLESS HIGH BLOOD PRESSURE IN AM THEN HE WILL GET 2 (ONE IN AM AND ONE IN P,M)
  17. BOTOX [Concomitant]
     Active Substance: ONABOTULINUMTOXINA
     Indication: DROOLING
  18. MEMANTINE. [Concomitant]
     Active Substance: MEMANTINE
     Dosage: 10 MILLIGRAM
  19. CARBIDOPA/LEVODOPA [Concomitant]
     Active Substance: CARBIDOPA\LEVODOPA
     Dosage: 25?100 MG
  20. ZOLPIDEM [Concomitant]
     Active Substance: ZOLPIDEM TARTRATE
     Dosage: 5 MILLIGRAM

REACTIONS (4)
  - Illness [Unknown]
  - Death [Recovered/Resolved]
  - Intestinal obstruction [Unknown]
  - Product dose omission issue [Unknown]

NARRATIVE: CASE EVENT DATE: 201912
